FAERS Safety Report 6700561-3 (Version None)
Quarter: 2010Q2

REPORT INFORMATION
  Report Type: 
  Country: None (occurrence: None)
  Receive Date: 20100428
  Receipt Date: 20100419
  Transmission Date: 20101027
  Serious: Yes (Hospitalization)
  Sender: FDA-Public Use
  Company Number: B0648262A

PATIENT
  Sex: Male

DRUGS (2)
  1. IMIGRANE [Suspect]
     Indication: MIGRAINE
     Route: 045
     Dates: start: 20090805, end: 20090813
  2. ISOPTIN [Suspect]
     Indication: CLUSTER HEADACHE
     Dosage: 1UNIT TWICE PER DAY
     Route: 048
     Dates: start: 20090806

REACTIONS (5)
  - CHEST PAIN [None]
  - ELECTROCARDIOGRAM REPOLARISATION ABNORMALITY [None]
  - ELECTROCARDIOGRAM ST SEGMENT ELEVATION [None]
  - OVERDOSE [None]
  - PRINZMETAL ANGINA [None]
